FAERS Safety Report 5061299-4 (Version None)
Quarter: 2006Q3

REPORT INFORMATION
  Report Type: 
  Country: None (occurrence: None)
  Receive Date: 20060719
  Receipt Date: 20060719
  Transmission Date: 20061208
  Serious: Yes (Hospitalization)
  Sender: FDA-Public Use
  Company Number: None

PATIENT
  Age: 60 Year
  Sex: Male

DRUGS (16)
  1. FUROSEMIDE [Suspect]
     Indication: FLUID RETENTION
     Dosage: 40MG  QD
     Dates: start: 20010801
  2. FUROSEMIDE [Suspect]
     Indication: HYPERTENSION
     Dosage: 40MG  QD
     Dates: start: 20010801
  3. PAROXETINE HCL [Concomitant]
  4. LORAZEPAM [Concomitant]
  5. ISOSORBIDE DINITRATE [Concomitant]
  6. PIROXICAM [Concomitant]
  7. ROSIGLITAZONE [Concomitant]
  8. BACLOFEN [Concomitant]
  9. ASPIRIN [Concomitant]
  10. SYNTHROID [Concomitant]
  11. TAMSULOSIN HCL [Concomitant]
  12. LOSARTIN [Concomitant]
  13. METOPROL [Concomitant]
  14. NITROGLYCERIN [Concomitant]
  15. OMEPRAZOLE [Concomitant]
  16. VITAMIN D [Concomitant]

REACTIONS (2)
  - DIALYSIS [None]
  - RENAL FAILURE ACUTE [None]
